FAERS Safety Report 18622076 (Version 1)
Quarter: 2020Q4

REPORT INFORMATION
  Report Type: Spontaneous
  Country: JP (occurrence: JP)
  Receive Date: 20201216
  Receipt Date: 20201216
  Transmission Date: 20210114
  Serious: Yes (Life-Threatening, Hospitalization)
  Sender: FDA-Public Use
  Company Number: JP-MACLEODS PHARMACEUTICALS US LTD-MAC2020029434

PATIENT

DRUGS (1)
  1. SILDENAFIL 50 MG [Suspect]
     Active Substance: SILDENAFIL
     Indication: PRODUCT USED FOR UNKNOWN INDICATION
     Dosage: 50 MILLIGRAM, SINGLE
     Route: 048

REACTIONS (4)
  - Hypotension [Recovered/Resolved]
  - Loss of consciousness [Unknown]
  - Renal injury [Unknown]
  - Toxicity to various agents [Unknown]
